FAERS Safety Report 8515641 (Version 2)
Quarter: 2012Q4

REPORT INFORMATION
  Report Type: 
  Country: US (occurrence: US)
  Receive Date: 20120417
  Receipt Date: 20120830
  Transmission Date: 20130627
  Serious: Yes (Hospitalization)
  Sender: FDA-Public Use
  Company Number: US-BAYER-2012-034645

PATIENT
  Age: 31 Year
  Sex: Female
  Weight: 195.1 kg

DRUGS (3)
  1. YAZ [Suspect]
     Indication: PREMENSTRUAL SYNDROME
     Dosage: UNK
     Dates: start: 201002, end: 201003
  2. MUPIROCIN [Concomitant]
     Dosage: UNK UNK, two times daily
     Route: 061
  3. SSD [Concomitant]
     Dosage: 1% Cream apply sparingly to affected area BID
     Route: 061

REACTIONS (8)
  - Pulmonary embolism [Recovered/Resolved]
  - Pulmonary infarction [None]
  - Deep vein thrombosis [None]
  - Thrombophlebitis superficial [None]
  - Injury [None]
  - Pain [None]
  - Fear [None]
  - Mental disorder [None]
